FAERS Safety Report 19534384 (Version 2)
Quarter: 2024Q3

REPORT INFORMATION
  Report Type: Spontaneous
  Country: BR (occurrence: BR)
  Receive Date: 20210714
  Receipt Date: 20240710
  Transmission Date: 20241016
  Serious: Yes (Hospitalization, Other)
  Sender: AUROBINDO
  Company Number: BR-AUROBINDO PHARMA LIMITED-09-AUR-09714

PATIENT
  Age: 2 Year
  Sex: Female

DRUGS (5)
  1. AMOXICILLIN [Suspect]
     Active Substance: AMOXICILLIN
     Indication: Pneumonia
     Dosage: UNK
     Route: 065
  2. CEFTRIAXONE [Suspect]
     Active Substance: CEFTRIAXONE\CEFTRIAXONE SODIUM
     Indication: Product used for unknown indication
     Dosage: 100 MILLIGRAM/KILOGRAM
     Route: 065
  3. OXACILLIN [Suspect]
     Active Substance: OXACILLIN SODIUM
     Indication: Product used for unknown indication
     Dosage: 200 MILLIGRAM/KILOGRAM
     Route: 065
  4. METHYLPREDNISOLONE [Concomitant]
     Active Substance: METHYLPREDNISOLONE
     Indication: Vasculitis
     Dosage: 30 MILLIGRAM/KILOGRAM
     Route: 042
  5. CYCLOPHOSPHAMIDE [Concomitant]
     Active Substance: CYCLOPHOSPHAMIDE
     Indication: Vasculitis
     Dosage: 500 MILLIGRAM/SQ. METER
     Route: 065

REACTIONS (14)
  - Drug reaction with eosinophilia and systemic symptoms [Recovered/Resolved]
  - Systemic lupus erythematosus [Recovered/Resolved]
  - Myocarditis [Recovered/Resolved]
  - Necrosis [Recovered/Resolved]
  - Pancytopenia [Recovered/Resolved]
  - Lymphocyte morphology abnormal [Recovered/Resolved]
  - Hepatomegaly [Recovered/Resolved]
  - Transaminases increased [Recovered/Resolved]
  - Chest X-ray abnormal [Recovered/Resolved]
  - Inflammation [Recovered/Resolved]
  - Pyrexia [Recovered/Resolved]
  - Oedema peripheral [Recovered/Resolved]
  - Cardiac murmur [Recovered/Resolved]
  - Condition aggravated [Recovered/Resolved]
